FAERS Safety Report 5165724-X (Version None)
Quarter: 2006Q4

REPORT INFORMATION
  Report Type: 
  Country: None (occurrence: None)
  Receive Date: 20061128
  Receipt Date: 20061122
  Transmission Date: 20070319
  Serious: Yes (Life-Threatening, Hospitalization)
  Sender: FDA-Public Use
  Company Number: 200611AGG00518

PATIENT
  Age: 60 Year
  Sex: Female

DRUGS (14)
  1. AGGRASTAT [Suspect]
     Dosage: 13.3 MCG/MIN; IV
     Route: 042
     Dates: start: 20060614, end: 20060615
  2. BISOHEXAL (BISOPROLOL FUMARATE) [Concomitant]
  3. DECORTIN H (PREDNISILONE) [Concomitant]
  4. ENAHEXAL (ENALARPIL MALEATE) [Concomitant]
  5. ISCOVER (CLOPIDOGREL BISULFATE) [Concomitant]
  6. ISDN (ISOSORBIDE DINITRATE) [Concomitant]
  7. LEVOTHYROXINE SODIUM [Concomitant]
  8. NEXIUM [Concomitant]
  9. SIMVAHEXAL (SIMVASTATIN) [Concomitant]
  10. ASPIRIN [Concomitant]
  11. ASPIRIN [Concomitant]
  12. HEPARIN [Concomitant]
  13. HYDROCHLOROTHIAZIDE [Concomitant]
  14. MOLSIDOMINE HYDROCHLORIDE [Concomitant]

REACTIONS (3)
  - ANAEMIA [None]
  - HYPOTENSION [None]
  - OVERDOSE [None]
